FAERS Safety Report 9510305 (Version 1)
Quarter: 2013Q3

REPORT INFORMATION
  Report Type: Spontaneous
  Country: US (occurrence: US)
  Receive Date: 20130909
  Receipt Date: 20130909
  Transmission Date: 20140515
  Serious: Yes (Life-Threatening)
  Sender: FDA-Public Use
  Company Number: US-BRISTOL-MYERS SQUIBB COMPANY-17473083

PATIENT
  Age: 16 Year
  Sex: Male

DRUGS (1)
  1. ABILIFY [Suspect]
     Indication: AUTISM
     Dosage: UNK DATE: DECREASED TO 7.5MG,5MG,2.5MG
     Route: 048
     Dates: start: 2008

REACTIONS (3)
  - Diabetic ketoacidosis [Unknown]
  - Irritability [Unknown]
  - Hypoglycaemia [Unknown]
